FAERS Safety Report 14581538 (Version 3)
Quarter: 2018Q2

REPORT INFORMATION
  Report Type: Spontaneous
  Country: US (occurrence: US)
  Receive Date: 20180228
  Receipt Date: 20180403
  Transmission Date: 20180711
  Serious: No
  Sender: FDA-Public Use
  Company Number: US-TEVA-2018-US-854673

PATIENT
  Age: 86 Year
  Sex: Male

DRUGS (3)
  1. LORAZEPAM. [Suspect]
     Active Substance: LORAZEPAM
     Indication: SLEEP DISORDER
     Dates: start: 2016
  2. LORAZEPAM. [Suspect]
     Active Substance: LORAZEPAM
     Indication: PRURITUS
  3. LORAZEPAM. [Suspect]
     Active Substance: LORAZEPAM
     Indication: BURNING SENSATION

REACTIONS (1)
  - Drug ineffective for unapproved indication [Unknown]

NARRATIVE: CASE EVENT DATE: 20180104
